FAERS Safety Report 5409484-3 (Version None)
Quarter: 2007Q3

REPORT INFORMATION
  Report Type: 
  Country: None (occurrence: None)
  Receive Date: 20070807
  Receipt Date: 20070807
  Transmission Date: 20080115
  Serious: Yes (Life-Threatening, Other)
  Sender: FDA-Public Use
  Company Number: None

PATIENT
  Age: 51 Year
  Sex: Female
  Weight: 54.4316 kg

DRUGS (1)
  1. DESYREL [Suspect]
     Indication: INSOMNIA
     Dosage: 1XNIGHTLY

REACTIONS (35)
  - ABDOMINAL PAIN [None]
  - AKINESIA [None]
  - AMNESIA [None]
  - ANAESTHETIC COMPLICATION [None]
  - ANXIETY [None]
  - ASTHENIA [None]
  - BALANCE DISORDER [None]
  - BLOOD AMYLASE INCREASED [None]
  - CARDIAC ARREST [None]
  - CHEST PAIN [None]
  - CONFUSIONAL STATE [None]
  - DEEP VEIN THROMBOSIS [None]
  - DEPRESSION [None]
  - DYSPNOEA [None]
  - FALL [None]
  - FEAR [None]
  - GAIT DISTURBANCE [None]
  - HEADACHE [None]
  - HYPOTENSION [None]
  - INCONTINENCE [None]
  - IRRITABILITY [None]
  - LIVER FUNCTION TEST ABNORMAL [None]
  - MENTAL IMPAIRMENT [None]
  - MUSCLE TWITCHING [None]
  - MUSCULAR WEAKNESS [None]
  - NAUSEA [None]
  - PAIN [None]
  - PAIN IN EXTREMITY [None]
  - PARAESTHESIA [None]
  - TACHYCARDIA [None]
  - TREATMENT FAILURE [None]
  - TREMOR [None]
  - URINARY RETENTION [None]
  - VISION BLURRED [None]
  - WHITE BLOOD CELL COUNT INCREASED [None]
